FAERS Safety Report 4408883-6 (Version None)
Quarter: 2004Q3

REPORT INFORMATION
  Report Type: 
  Country: None (occurrence: None)
  Receive Date: 20040727
  Receipt Date: 20040721
  Transmission Date: 20050211
  Serious: Yes (Other)
  Sender: FDA-Public Use
  Company Number: DE-GLAXOSMITHKLINE-D0044301A

PATIENT
  Sex: Male

DRUGS (1)
  1. QUILONUM RETARD [Suspect]
     Indication: BIPOLAR I DISORDER
     Dosage: 1.5TAB TWICE PER DAY
     Route: 048
     Dates: start: 19970101

REACTIONS (2)
  - INFERTILITY MALE [None]
  - SPERM COUNT ZERO [None]
